FAERS Safety Report 6976398-7 (Version None)
Quarter: 2010Q3

REPORT INFORMATION
  Report Type: 
  Country: None (occurrence: None)
  Receive Date: 20100910
  Receipt Date: 20090423
  Transmission Date: 20110219
  Serious: No
  Sender: FDA-Public Use
  Company Number: US-WYE-H09116609

PATIENT
  Sex: Female
  Weight: 86.26 kg

DRUGS (7)
  1. PRISTIQ [Suspect]
     Indication: DEPRESSION
     Route: 048
     Dates: start: 20090309, end: 20090422
  2. DIOVAN [Concomitant]
  3. MELATONIN [Concomitant]
  4. DONNATAL [Concomitant]
  5. SINGULAIR [Concomitant]
  6. ACETYLSALICYLIC ACID [Concomitant]
  7. METFORMIN [Concomitant]

REACTIONS (3)
  - ABDOMINAL PAIN [None]
  - HOT FLUSH [None]
  - HYPERHIDROSIS [None]
